APPROVED DRUG PRODUCT: DOXYCYCLINE HYCLATE
Active Ingredient: DOXYCYCLINE HYCLATE
Strength: EQ 150MG BASE
Dosage Form/Route: TABLET, DELAYED RELEASE;ORAL
Application: A091052 | Product #001
Applicant: AUROBINDO PHARMA USA INC
Approved: Feb 8, 2012 | RLD: No | RS: No | Type: DISCN